FAERS Safety Report 9865458 (Version 2)
Quarter: 2014Q1

REPORT INFORMATION
  Report Type: Spontaneous
  Country: US (occurrence: US)
  Receive Date: 20140203
  Receipt Date: 20140203
  Transmission Date: 20141002
  Serious: No
  Sender: FDA-Public Use
  Company Number: US-ALLERGAN-1308992US

PATIENT
  Age: 85 Year
  Sex: Female

DRUGS (4)
  1. RESTASIS [Suspect]
     Indication: DRY EYE
     Dosage: 2 GTT, BID
     Route: 047
  2. REFRESH OPTIVE ADVANCED SENSITIVE [Suspect]
     Indication: PRODUCT USED FOR UNKNOWN INDICATION
     Dosage: 2 GTT, BID
     Route: 047
  3. TRAVATAN Z [Concomitant]
  4. ALPHAGAN [Concomitant]

REACTIONS (3)
  - Glare [Not Recovered/Not Resolved]
  - Wrong drug administered [Unknown]
  - Therapeutic response decreased [Unknown]
